FAERS Safety Report 11689721 (Version 1)
Quarter: 2015Q4

REPORT INFORMATION
  Report Type: Spontaneous
  Country: US (occurrence: None)
  Receive Date: 20151030
  Receipt Date: 20151030
  Transmission Date: 20160304
  Serious: Yes (Other)
  Sender: FDA-Public Use
  Company Number: None

PATIENT
  Age: 38 Year
  Sex: Female
  Weight: 60.78 kg

DRUGS (5)
  1. MEDTRONIC INSULIN PUMP [Concomitant]
  2. METFORMIN [Concomitant]
     Active Substance: METFORMIN HYDROCHLORIDE
  3. HUMALOG [Concomitant]
     Active Substance: INSULIN LISPRO
  4. DEXCOM CGM DEVICE [Concomitant]
  5. METFORMIN ER 500 MG AMNEAL [Suspect]
     Active Substance: METFORMIN HYDROCHLORIDE
     Indication: INSULIN RESISTANT DIABETES
     Dosage: 2000 MG DAILY (4 PILLS) ONCE DAILY TAKEN BY MOUTH
     Route: 048
     Dates: start: 20150930, end: 20151023

REACTIONS (3)
  - Drug ineffective [None]
  - Product substitution issue [None]
  - Blood glucose increased [None]

NARRATIVE: CASE EVENT DATE: 20151001
